FAERS Safety Report 16666360 (Version 1)
Quarter: 2019Q3

REPORT INFORMATION
  Report Type: Report from Study
  Country: US (occurrence: US)
  Receive Date: 20190805
  Receipt Date: 20190805
  Transmission Date: 20191004
  Serious: Yes (Hospitalization)
  Sender: FDA-Public Use
  Company Number: US-ROCHE-2306521

PATIENT
  Age: 61 Year
  Sex: Female
  Weight: 90.7 kg

DRUGS (5)
  1. BEVACIZUMAB. [Suspect]
     Active Substance: BEVACIZUMAB
     Indication: FALLOPIAN TUBE CANCER
     Dosage: MOST RECENT DOSE WAS ON 14/SEP/2018?MOST RECENT DOSE WAS ON 26/OCT/2018 (2000 MG)
     Route: 042
     Dates: start: 20180914
  2. ATEZOLIZUMAB. [Suspect]
     Active Substance: ATEZOLIZUMAB
     Indication: FALLOPIAN TUBE CANCER
     Dosage: MOST RECENT DOSE WAS ON 14/SEP/2018?MOST RECENT DOSE ON 26/OCT/2018 (1600 MG)
     Route: 041
     Dates: start: 20180914
  3. KEFLEX [Concomitant]
     Active Substance: CEPHALEXIN
  4. LIPOSOMAL DOXORUBICIN HYDROCHLORIDE [Suspect]
     Active Substance: DOXORUBICIN HYDROCHLORIDE
     Indication: FALLOPIAN TUBE CANCER
     Dosage: MOST RECENT DOSE WAS ON 14/SEP/2018
     Route: 042
     Dates: start: 20180914
  5. TYLENOL [Concomitant]
     Active Substance: ACETAMINOPHEN

REACTIONS (4)
  - Fatigue [Recovering/Resolving]
  - Stomatitis [Recovering/Resolving]
  - Rectal haemorrhage [Recovering/Resolving]
  - Fatigue [Not Recovered/Not Resolved]

NARRATIVE: CASE EVENT DATE: 20180916
